FAERS Safety Report 15206398 (Version 1)
Quarter: 2018Q4

REPORT INFORMATION
  Report Type: Spontaneous
  Country: FR (occurrence: FR)
  Receive Date: 20180727
  Receipt Date: 20180727
  Transmission Date: 20190204
  Serious: Yes (Other)
  Sender: FDA-Public Use
  Company Number: FR-TEVA-2018-FR-930279

PATIENT
  Age: 77 Year
  Sex: Male
  Weight: 73.5 kg

DRUGS (1)
  1. DOC?TAXEL TRIHYDRAT? [Suspect]
     Active Substance: DOCETAXEL
     Indication: PROSTATE CANCER
     Route: 041
     Dates: start: 20180518

REACTIONS (1)
  - Injection site extravasation [Recovered/Resolved with Sequelae]

NARRATIVE: CASE EVENT DATE: 20180518
